FAERS Safety Report 9320810 (Version 1)
Quarter: 2013Q2

REPORT INFORMATION
  Report Type: Spontaneous
  Country: AU (occurrence: None)
  Receive Date: 20130528
  Receipt Date: 20130528
  Transmission Date: 20140414
  Serious: Yes (Life-Threatening)
  Sender: FDA-Public Use
  Company Number: 2013-AU-000022

PATIENT
  Age: 85 Year
  Sex: Male

DRUGS (2)
  1. ERYTHROMYCIN [Suspect]
     Indication: PNEUMONIA
     Dosage: 400 MG TWICE DAILY FOR 10 DAYS
  2. SIMVASTATIN [Suspect]

REACTIONS (8)
  - Rhabdomyolysis [None]
  - Potentiating drug interaction [None]
  - Fall [None]
  - Mobility decreased [None]
  - Chromaturia [None]
  - Renal disorder [None]
  - Blood creatinine increased [None]
  - Blood urea increased [None]
